FAERS Safety Report 8614434-2 (Version None)
Quarter: 2012Q3

REPORT INFORMATION
  Report Type: 
  Country: None (occurrence: None)
  Receive Date: 20120823
  Receipt Date: 20120816
  Transmission Date: 20120928
  Serious: Yes (Other)
  Sender: FDA-Public Use
  Company Number: PHEH2012US016291

PATIENT
  Sex: Female

DRUGS (11)
  1. AFINITOR [Suspect]
     Dosage: 5 MG, QD
     Route: 048
  2. AMOXICILLIN [Concomitant]
  3. OXYCODONE HCL [Concomitant]
  4. AFINITOR [Suspect]
     Indication: BREAST CANCER
     Dosage: 10 MG, QD
     Dates: start: 20120705
  5. FASLODEX [Concomitant]
  6. OMEPRAZOLE [Concomitant]
  7. FENTANYL [Concomitant]
  8. ONDANSETRON [Concomitant]
  9. HYDROCODONE [Concomitant]
  10. NIFEDIPINE [Concomitant]
  11. CHLORHEXIDINE GLUCONATE [Concomitant]

REACTIONS (8)
  - NEUROPATHY PERIPHERAL [None]
  - GALLBLADDER DISORDER [None]
  - OESOPHAGEAL PAIN [None]
  - ABDOMINAL PAIN [None]
  - DIARRHOEA [None]
  - FACIAL PAIN [None]
  - VOMITING [None]
  - EAR PAIN [None]
